FAERS Safety Report 14157769 (Version 1)
Quarter: 2017Q4

REPORT INFORMATION
  Report Type: Spontaneous
  Country: RU (occurrence: RU)
  Receive Date: 20171103
  Receipt Date: 20171103
  Transmission Date: 20180321
  Serious: Yes (Other)
  Sender: FDA-Public Use
  Company Number: RU-BAYER-2017-208079

PATIENT
  Age: 59 Year
  Sex: Male

DRUGS (2)
  1. SORAFENIB (RAF KINASE INHIBITOR) [Suspect]
     Active Substance: SORAFENIB
     Indication: PAPILLARY THYROID CANCER
     Dosage: 600 MG, UNK
     Dates: start: 201606
  2. LENVATINIB [Concomitant]
     Active Substance: LENVATINIB
     Dosage: 24 MG, UNK
     Dates: start: 201610

REACTIONS (5)
  - Cardiotoxicity [None]
  - Palmar-plantar erythrodysaesthesia syndrome [None]
  - Ejection fraction decreased [None]
  - Therapeutic product ineffective [None]
  - Hypertension [None]
